FAERS Safety Report 24536560 (Version 8)
Quarter: 2025Q1

REPORT INFORMATION
  Report Type: Spontaneous
  Country: US (occurrence: US)
  Receive Date: 20241022
  Receipt Date: 20250305
  Transmission Date: 20250409
  Serious: Yes (Hospitalization)
  Sender: SANOFI AVENTIS
  Company Number: US-SA-2024SA300850

PATIENT
  Age: 10 Year
  Sex: Male

DRUGS (2)
  1. ELOCTATE [Suspect]
     Active Substance: EFMOROCTOCOG ALFA
     Indication: Haemorrhage
     Dosage: 2750 UNITS (+/-10%) , Q3D OE AS NEEDED
     Route: 042
  2. ELOCTATE [Suspect]
     Active Substance: EFMOROCTOCOG ALFA
     Indication: Haemorrhage
     Dosage: 2750 UNITS (+/-10%) , Q3D OE AS NEEDED
     Route: 042

REACTIONS (9)
  - Respiratory tract infection [Unknown]
  - Fall [Unknown]
  - Limb injury [Unknown]
  - Haemorrhage [Unknown]
  - Catheter site irritation [Unknown]
  - Haemorrhage [Unknown]
  - Haemorrhage [Unknown]
  - Arthralgia [Not Recovered/Not Resolved]
  - Arthralgia [Unknown]

NARRATIVE: CASE EVENT DATE: 20241003
